FAERS Safety Report 18402985 (Version 1)
Quarter: 2020Q4

REPORT INFORMATION
  Report Type: Spontaneous
  Country: FR (occurrence: FR)
  Receive Date: 20201020
  Receipt Date: 20201020
  Transmission Date: 20210114
  Serious: Yes (Death)
  Sender: FDA-Public Use
  Company Number: FR-TEVA-2020-FR-1839146

PATIENT
  Age: 81 Year
  Sex: Male

DRUGS (5)
  1. BISOPROLOL (HEMIFUMARATE DE) [Suspect]
     Active Substance: BISOPROLOL FUMARATE
     Indication: HYPERTENSION
     Dosage: 1.25 MG
     Route: 048
     Dates: end: 20200817
  2. ELIQUIS [Suspect]
     Active Substance: APIXABAN
     Indication: ATRIAL FIBRILLATION
     Dosage: 2 DOSAGE FORMS
     Route: 048
     Dates: end: 20200817
  3. LEXOMIL ROCHE COMPRIME BAGUETTE, COMPRIME QUADRISECABLE [Suspect]
     Active Substance: BROMAZEPAM
     Indication: ANXIETY
     Dosage: 0.5  DOSAGE FORMS
     Route: 048
     Dates: end: 20200817
  4. LERCAN 10 MG, COMPRIME PELLICULE SECABLE [Suspect]
     Active Substance: LERCANIDIPINE HYDROCHLORIDE
     Indication: HYPERTENSION
     Dosage: 1 DOSAGE FORMS
     Route: 048
     Dates: end: 20200817
  5. TAHOR [Suspect]
     Active Substance: ATORVASTATIN CALCIUM
     Indication: DYSLIPIDAEMIA
     Dosage: 1 DOSAGE FORMS
     Route: 048
     Dates: end: 20200817

REACTIONS (2)
  - Coma [Fatal]
  - Subdural haematoma [Fatal]

NARRATIVE: CASE EVENT DATE: 20200817
